FAERS Safety Report 12158568 (Version 1)
Quarter: 2016Q1

REPORT INFORMATION
  Report Type: Spontaneous
  Country: US (occurrence: US)
  Receive Date: 20160308
  Receipt Date: 20160308
  Transmission Date: 20160526
  Serious: No
  Sender: FDA-Public Use
  Company Number: US-JNJFOC-20160114205

PATIENT
  Age: 60 Year
  Sex: Female
  Weight: 58.97 kg

DRUGS (1)
  1. TYLENOL REGULAR STRENGTH [Suspect]
     Active Substance: ACETAMINOPHEN
     Indication: SINUSITIS
     Route: 048
     Dates: start: 20160104

REACTIONS (5)
  - Somnolence [Unknown]
  - Off label use [Unknown]
  - Incorrect drug administration duration [Unknown]
  - Product use issue [Unknown]
  - Incorrect dose administered [Unknown]
